FAERS Safety Report 9143257 (Version 2)
Quarter: 2013Q2

REPORT INFORMATION
  Report Type: Spontaneous
  Country: MX (occurrence: MX)
  Receive Date: 20130306
  Receipt Date: 20130408
  Transmission Date: 20140414
  Serious: Yes (Other)
  Sender: FDA-Public Use
  Company Number: PHHY2013MX020312

PATIENT
  Age: 75 Year
  Sex: Female

DRUGS (3)
  1. GALVUS MET [Suspect]
     Indication: DIABETES MELLITUS
     Dosage: 1 DF(VILDA 850MG, METF 50MG), DAILY
     Route: 048
  2. RASILEZ [Suspect]
     Indication: HYPERTENSION
     Dosage: 1 DF (USPECIFIED DOSE) DAILY
  3. INSULIN [Concomitant]
     Indication: DIABETES MELLITUS
     Dosage: 26 IU, UNK
     Dates: end: 20130226

REACTIONS (2)
  - Blood glucose increased [Recovered/Resolved]
  - Asthenia [Not Recovered/Not Resolved]
